FAERS Safety Report 7603406-2 (Version None)
Quarter: 2011Q3

REPORT INFORMATION
  Report Type: 
  Country: None (occurrence: None)
  Receive Date: 20110712
  Receipt Date: 20110701
  Transmission Date: 20111222
  Serious: Yes (Life-Threatening, Hospitalization, Other)
  Sender: FDA-Public Use
  Company Number: BE-JNJFOC-20060603777

PATIENT
  Sex: Male
  Weight: 87 kg

DRUGS (34)
  1. FUZEON [Suspect]
     Indication: HIV INFECTION
     Route: 058
     Dates: start: 20060612, end: 20060612
  2. RALTEGRAVIR [Suspect]
     Route: 048
     Dates: start: 20060511, end: 20060605
  3. VIREAD [Concomitant]
     Route: 048
     Dates: start: 20040313, end: 20060605
  4. GABAPENTIN [Concomitant]
     Indication: BACK PAIN
     Route: 048
     Dates: start: 20060511, end: 20060627
  5. MUCOPOLYSACCHARIDE POLYSULFATE [Concomitant]
     Route: 065
     Dates: start: 20060523, end: 20060623
  6. RITONAVIR [Suspect]
     Route: 048
     Dates: start: 20060511, end: 20060605
  7. EMTRIVA [Concomitant]
     Route: 048
     Dates: start: 20061109
  8. CITALOPRAM HYDROBROMIDE [Concomitant]
     Indication: DEPRESSION
     Route: 048
     Dates: start: 20060115, end: 20060627
  9. TERAZOSIN HCL [Concomitant]
     Indication: PROSTATISM
     Route: 048
     Dates: start: 20051115, end: 20060809
  10. FUZEON [Suspect]
     Route: 058
     Dates: start: 20060511, end: 20060605
  11. VIREAD [Concomitant]
     Route: 048
     Dates: start: 20061011, end: 20061011
  12. CYPROHEPTADINE HYDROCHLORIDE [Concomitant]
     Indication: DECREASED APPETITE
     Route: 048
     Dates: start: 20060215, end: 20060627
  13. HIRUDOID [Concomitant]
     Indication: INJECTION SITE REACTION
     Route: 061
     Dates: start: 20060523, end: 20060627
  14. RALTEGRAVIR [Suspect]
     Route: 048
     Dates: start: 20061109
  15. EMTRIVA [Concomitant]
     Indication: HIV INFECTION
     Route: 048
     Dates: start: 20060615, end: 20060616
  16. EMTRIVA [Concomitant]
     Route: 048
     Dates: start: 20060511, end: 20060605
  17. EMTRIVA [Concomitant]
     Route: 048
     Dates: start: 20061011, end: 20061011
  18. FENTANYL [Concomitant]
     Indication: BACK PAIN
     Route: 048
     Dates: start: 20020701
  19. RITONAVIR [Suspect]
     Route: 048
     Dates: start: 20061011, end: 20061011
  20. RITONAVIR [Suspect]
     Route: 048
     Dates: start: 20061109
  21. RALTEGRAVIR [Suspect]
     Indication: HIV INFECTION
     Route: 048
     Dates: start: 20061011, end: 20061011
  22. VIREAD [Concomitant]
     Indication: HIV INFECTION
     Route: 048
     Dates: start: 20061109
  23. VIREAD [Concomitant]
     Route: 048
     Dates: start: 20060615, end: 20060616
  24. TRAZODONE HCL [Concomitant]
     Indication: DEPRESSION
     Route: 048
     Dates: start: 20051215, end: 20060627
  25. TMC114 [Suspect]
     Route: 048
     Dates: start: 20060511, end: 20060606
  26. RITONAVIR [Suspect]
     Route: 048
     Dates: start: 19991015, end: 20060510
  27. VIREAD [Concomitant]
     Route: 048
     Dates: start: 20060911, end: 20060914
  28. TMC114 [Suspect]
     Indication: HIV INFECTION
     Route: 048
     Dates: start: 20060615, end: 20060617
  29. RITONAVIR [Suspect]
     Indication: HIV INFECTION
     Route: 048
     Dates: start: 20060911, end: 20060914
  30. RITONAVIR [Suspect]
     Route: 048
     Dates: start: 20060615, end: 20060616
  31. RALTEGRAVIR [Suspect]
     Route: 048
     Dates: start: 20060905, end: 20060914
  32. RALTEGRAVIR [Suspect]
     Route: 048
     Dates: start: 20060615, end: 20060616
  33. EMTRIVA [Concomitant]
     Route: 048
     Dates: start: 20060908, end: 20060914
  34. TRAMADOL HCL [Concomitant]
     Indication: BACK PAIN
     Route: 048
     Dates: start: 20020701, end: 20060627

REACTIONS (4)
  - DRUG HYPERSENSITIVITY [None]
  - OEDEMA PERIPHERAL [None]
  - BENIGN PROSTATIC HYPERPLASIA [None]
  - HYPERSENSITIVITY [None]
